FAERS Safety Report 6742417-6 (Version None)
Quarter: 2010Q2

REPORT INFORMATION
  Report Type: 
  Country: None (occurrence: None)
  Receive Date: 20100526
  Receipt Date: 20100526
  Transmission Date: 20101027
  Serious: Yes (Death)
  Sender: FDA-Public Use
  Company Number: AT-CEPHALON-2010002926

PATIENT

DRUGS (1)
  1. TRISENOX [Suspect]
     Indication: NEOPLASM MALIGNANT
     Route: 041
     Dates: start: 20100101

REACTIONS (1)
  - DEATH [None]
